FAERS Safety Report 8728690 (Version 2)
Quarter: 2013Q3

REPORT INFORMATION
  Report Type: Spontaneous
  Country: US (occurrence: US)
  Receive Date: 20120817
  Receipt Date: 20130708
  Transmission Date: 20140515
  Serious: Yes (Other)
  Sender: FDA-Public Use
  Company Number: PHEH2012US016027

PATIENT
  Age: 9 Year
  Sex: Female

DRUGS (6)
  1. TRILEPTAL [Suspect]
     Indication: GRAND MAL CONVULSION
     Dosage: 150 MG EVERY MORNING AND 300 MG EVERY EVENING
     Dates: start: 20101117
  2. PREDNISOLONE [Concomitant]
  3. PROPOFOL [Concomitant]
  4. BENADRYL [Concomitant]
  5. PRECEDEX [Concomitant]
  6. NAFCILLIN [Concomitant]

REACTIONS (35)
  - Stevens-Johnson syndrome [Recovered/Resolved]
  - Erythema [Unknown]
  - Petechiae [Unknown]
  - Rash [Unknown]
  - Dermatitis [Unknown]
  - Rash maculo-papular [Unknown]
  - Lip erosion [Unknown]
  - Swelling face [Unknown]
  - Oral mucosa erosion [Unknown]
  - Blister [Unknown]
  - Skin lesion [Unknown]
  - Respiratory distress [Unknown]
  - Dermatitis bullous [Unknown]
  - Oral disorder [Unknown]
  - Oral pain [Unknown]
  - Conjunctival hyperaemia [Unknown]
  - Eye pain [Unknown]
  - Injury [Unknown]
  - Pigmentation disorder [Unknown]
  - Skin exfoliation [Unknown]
  - Malaise [Unknown]
  - Liver function test abnormal [Unknown]
  - Transaminases increased [Unknown]
  - Oropharyngeal pain [Unknown]
  - Mouth ulceration [Unknown]
  - Eye discharge [Unknown]
  - Vaginal discharge [Unknown]
  - Vaginal lesion [Unknown]
  - Eye swelling [Unknown]
  - Rhinitis [Unknown]
  - Alopecia [Unknown]
  - Dysuria [Unknown]
  - Cough [Unknown]
  - Pyrexia [Unknown]
  - Dysphagia [Unknown]
